FAERS Safety Report 15090654 (Version 1)
Quarter: 2018Q2

REPORT INFORMATION
  Report Type: Spontaneous
  Country: IN (occurrence: IN)
  Receive Date: 20180629
  Receipt Date: 20180629
  Transmission Date: 20180711
  Serious: Yes (Other)
  Sender: FDA-Public Use
  Company Number: IN-009507513-1805IND014958

PATIENT
  Sex: Female

DRUGS (1)
  1. JANUVIA [Suspect]
     Active Substance: SITAGLIPTIN PHOSPHATE
     Route: 048

REACTIONS (5)
  - Product packaging issue [Unknown]
  - Suspected counterfeit product [Unknown]
  - Diabetes mellitus inadequate control [Unknown]
  - Product colour issue [Unknown]
  - Blood glucose increased [Unknown]
